FAERS Safety Report 6194515-6 (Version None)
Quarter: 2009Q2

REPORT INFORMATION
  Report Type: 
  Country: None (occurrence: None)
  Receive Date: 20090519
  Receipt Date: 20070306
  Transmission Date: 20091009
  Serious: Yes (Hospitalization)
  Sender: FDA-Public Use
  Company Number: US-ASTRAZENECA-2006UW11343

PATIENT
  Age: 15673 Day
  Sex: Male
  Weight: 98.9 kg

DRUGS (14)
  1. SEROQUEL [Suspect]
     Indication: SLEEP DISORDER
     Dosage: 25 MG TO 200 MG
     Route: 048
     Dates: start: 20020604
  2. PAXIL [Concomitant]
     Dosage: 20 MG - 60 MG
     Route: 048
  3. GLYBURIDE [Concomitant]
     Route: 065
  4. WELLBUTRIN [Concomitant]
     Dosage: 150 MG - 300 MG
     Route: 065
  5. ABILIFY [Concomitant]
     Dosage: 10 MG-15 MG
     Route: 048
  6. ALBUTEROL [Concomitant]
     Dosage: 2-4 PUFFS
     Route: 055
  7. ALBUTEROL [Concomitant]
     Route: 055
  8. THEOPHYLLINE [Concomitant]
     Route: 065
  9. METFORMIN HCL [Concomitant]
     Route: 048
  10. LORAZEPAM [Concomitant]
     Route: 030
  11. LORAZEPAM [Concomitant]
     Route: 048
  12. INSULIN [Concomitant]
     Route: 065
  13. HYDROXYZINE [Concomitant]
     Dosage: 10MG-25MG
     Route: 048
  14. TYLENOL [Concomitant]
     Indication: HEADACHE
     Route: 048

REACTIONS (7)
  - ALCOHOL ABUSE [None]
  - DRUG DEPENDENCE [None]
  - JOINT SPRAIN [None]
  - LYMPHADENOPATHY [None]
  - MAJOR DEPRESSION [None]
  - SUICIDAL IDEATION [None]
  - TYPE 2 DIABETES MELLITUS [None]
